FAERS Safety Report 22199756 (Version 1)
Quarter: 2023Q2

REPORT INFORMATION
  Report Type: Other
  Country: CN (occurrence: None)
  Receive Date: 20230412
  Receipt Date: 20230412
  Transmission Date: 20230722
  Serious: Yes (Other)
  Sender: FDA-Public Use
  Company Number: CN-ROCHE-3326927

PATIENT
  Age: 64 Year
  Sex: Male

DRUGS (9)
  1. BEVACIZUMAB [Suspect]
     Active Substance: BEVACIZUMAB
     Indication: Cholangiocarcinoma
     Route: 042
  2. LENVATINIB [Suspect]
     Active Substance: LENVATINIB
     Indication: Cholangiocarcinoma
     Route: 048
  3. PEMBROLIZUMAB [Suspect]
     Active Substance: PEMBROLIZUMAB
     Indication: Cholangiocarcinoma
     Dosage: OVER 30 MIN
     Route: 042
  4. PYROTINIB [Concomitant]
     Active Substance: PYROTINIB
     Indication: Cholangiocarcinoma
     Route: 048
  5. PYROTINIB [Concomitant]
     Active Substance: PYROTINIB
     Route: 048
  6. TEGAFUR [Concomitant]
     Active Substance: TEGAFUR
     Route: 048
  7. LENVATINIB [Concomitant]
     Active Substance: LENVATINIB
     Route: 048
  8. LENVATINIB [Concomitant]
     Active Substance: LENVATINIB
     Route: 048
     Dates: start: 202006
  9. PEMBROLIZUMAB [Concomitant]
     Active Substance: PEMBROLIZUMAB
     Dosage: OVER 30 MIN
     Route: 042

REACTIONS (4)
  - Fatigue [Unknown]
  - Bowel movement irregularity [Unknown]
  - Rash [Unknown]
  - Proteinuria [Unknown]
